FAERS Safety Report 9494555 (Version 2)
Quarter: 2013Q3

REPORT INFORMATION
  Report Type: Spontaneous
  Country: GB (occurrence: None)
  Receive Date: 20130828
  Receipt Date: 20130909
  Transmission Date: 20140515
  Serious: Yes (Other)
  Sender: FDA-Public Use
  Company Number: KAD201308-001057

PATIENT
  Age: 54 Year
  Sex: Male
  Weight: 96.2 kg

DRUGS (5)
  1. RIBAVIRIN (RIBAVIRIN) [Suspect]
     Indication: HEPATITIS C
     Route: 048
     Dates: start: 20130507
  2. PEGASYS (PEGINTERFERON ALFA-2A) [Suspect]
     Indication: HEPATITIS C
     Route: 058
     Dates: start: 20130507
  3. AMLODIPINE (AMLODIPINE) [Concomitant]
  4. LOSARTAN (LOSARTAN) [Concomitant]
  5. METFORMIN (METFORMIN) [Concomitant]

REACTIONS (1)
  - Genital hypoaesthesia [None]
